FAERS Safety Report 20432759 (Version 2)
Quarter: 2022Q1

REPORT INFORMATION
  Report Type: Spontaneous
  Country: US (occurrence: US)
  Receive Date: 20220205
  Receipt Date: 20220301
  Transmission Date: 20220423
  Serious: No
  Sender: FDA-Public Use
  Company Number: US-GLAXOSMITHKLINE-US2022018017

PATIENT
  Age: 57 Year
  Sex: Male

DRUGS (1)
  1. NUCALA [Suspect]
     Active Substance: MEPOLIZUMAB
     Indication: Asthma
     Dosage: 100 MG, Z, 1X DAILY EVERY FOUR WEEKS

REACTIONS (4)
  - Sinusitis [Recovering/Resolving]
  - COVID-19 [Unknown]
  - Pyrexia [Unknown]
  - Quarantine [Unknown]

NARRATIVE: CASE EVENT DATE: 20220101
